FAERS Safety Report 5147927-3 (Version None)
Quarter: 2006Q4

REPORT INFORMATION
  Report Type: 
  Country: None (occurrence: None)
  Receive Date: 20061110
  Receipt Date: 20061031
  Transmission Date: 20070319
  Serious: Yes (Hospitalization)
  Sender: FDA-Public Use
  Company Number: US-SANOFI-SYNTHELABO-A03200606621

PATIENT
  Age: 74 Year
  Sex: Female

DRUGS (2)
  1. AMBIEN [Suspect]
     Indication: INSOMNIA
     Route: 048
     Dates: start: 20051030, end: 20051030
  2. NEURONTIN [Concomitant]
     Dosage: UNK
     Route: 065

REACTIONS (3)
  - LOSS OF CONSCIOUSNESS [None]
  - SUICIDAL BEHAVIOUR [None]
  - TRANSIENT ISCHAEMIC ATTACK [None]
